FAERS Safety Report 9526134 (Version 1)
Quarter: 2013Q3

REPORT INFORMATION
  Report Type: Spontaneous
  Country: ES (occurrence: ES)
  Receive Date: 20130916
  Receipt Date: 20130916
  Transmission Date: 20140515
  Serious: Yes (Hospitalization)
  Sender: FDA-Public Use
  Company Number: ES-JNJFOC-20130905406

PATIENT
  Age: 33 Year
  Sex: Male

DRUGS (4)
  1. FORTASEC [Suspect]
     Route: 048
  2. FORTASEC [Suspect]
     Indication: DIARRHOEA
     Route: 048
     Dates: start: 201201, end: 20120115
  3. OMEPRAZOLE [Suspect]
     Indication: PROPHYLAXIS
     Route: 048
     Dates: start: 20120103, end: 20120113
  4. PARACETAMOL [Concomitant]
     Indication: HEADACHE
     Route: 065
     Dates: start: 20120113, end: 20120113

REACTIONS (1)
  - Thrombocytopenic purpura [Recovered/Resolved]
